FAERS Safety Report 6807940-4 (Version None)
Quarter: 2010Q2

REPORT INFORMATION
  Report Type: 
  Country: None (occurrence: None)
  Receive Date: 20100629
  Receipt Date: 20090321
  Transmission Date: 20101027
  Serious: No
  Sender: FDA-Public Use
  Company Number: US-PFIZER INC-2009166301

PATIENT
  Sex: Female
  Weight: 81.6 kg

DRUGS (15)
  1. ZYVOX [Suspect]
     Indication: OSTEOMYELITIS
     Dosage: 30 ML, 2X/DAY
     Dates: start: 20040312, end: 20040521
  2. ZYVOX [Suspect]
     Dosage: UNK
     Route: 048
     Dates: start: 20070801, end: 20070101
  3. ACETYLSALICYLIC ACID [Concomitant]
     Dosage: UNK
  4. FISH OIL [Concomitant]
     Dosage: UNK
  5. GABAPENTIN [Concomitant]
     Dosage: UNK
  6. METOPROLOL [Concomitant]
     Dosage: UNK
  7. ACTOS [Concomitant]
     Dosage: UNK
  8. VESICARE [Concomitant]
     Dosage: UNK
  9. OMEPRAZOLE [Concomitant]
     Dosage: UNK
  10. RAMIPRIL [Concomitant]
     Dosage: UNK
  11. LIPITOR [Concomitant]
     Dosage: UNK
  12. DYAZIDE [Concomitant]
     Dosage: UNK
  13. REQUIP [Concomitant]
     Dosage: UNK
  14. SIMVASTATIN [Concomitant]
     Dosage: UNK
  15. SOTALOL [Concomitant]
     Dosage: UNK

REACTIONS (5)
  - ASTHENIA [None]
  - DIZZINESS [None]
  - DYSGEUSIA [None]
  - NAUSEA [None]
  - PAROSMIA [None]
